FAERS Safety Report 4861793-2 (Version None)
Quarter: 2005Q4

REPORT INFORMATION
  Report Type: 
  Country: None (occurrence: None)
  Receive Date: 20051130
  Receipt Date: 20050808
  Transmission Date: 20060501
  Serious: Yes (Life-Threatening, Other)
  Sender: FDA-Public Use
  Company Number: 2005112526

PATIENT
  Age: 57 Year
  Sex: Male

DRUGS (9)
  1. ZYVOX [Suspect]
     Indication: STAPHYLOCOCCAL INFECTION
     Dosage: 1200 MG (600 MG, 2 IN 1 D), ORAL
     Route: 048
     Dates: start: 20050601, end: 20050701
  2. COUMADIN [Concomitant]
  3. DIGOXIN [Concomitant]
  4. TOPRAL (SULTOPRIDE) [Concomitant]
  5. VERAPAMIL [Concomitant]
  6. AMIODARONE HCL [Concomitant]
  7. VITAMIN B (VITAMIN B) [Concomitant]
  8. FOLATE (FOLIC ACID) [Concomitant]
  9. KEPPRA [Concomitant]

REACTIONS (2)
  - ANAEMIA [None]
  - APLASIA PURE RED CELL [None]
